FAERS Safety Report 25460535 (Version 1)
Quarter: 2025Q2

REPORT INFORMATION
  Report Type: Report from Study
  Country: DE (occurrence: DE)
  Receive Date: 20250620
  Receipt Date: 20250620
  Transmission Date: 20250717
  Serious: Yes (Death, Hospitalization)
  Sender: ROCHE
  Company Number: DE-ROCHE-10000318581

PATIENT
  Age: 32 Year
  Sex: Female

DRUGS (4)
  1. RITUXIMAB [Suspect]
     Active Substance: RITUXIMAB
     Indication: Systemic scleroderma
     Route: 042
  2. MYCOPHENOLATE MOFETIL [Suspect]
     Active Substance: MYCOPHENOLATE MOFETIL
     Indication: Systemic scleroderma
     Route: 048
  3. CYCLOPHOSPHAMIDE [Concomitant]
     Active Substance: CYCLOPHOSPHAMIDE
     Indication: Systemic scleroderma
     Route: 042
  4. CYCLOSPORINE [Concomitant]
     Active Substance: CYCLOSPORINE

REACTIONS (3)
  - Cardiogenic shock [Fatal]
  - Pneumonia [Unknown]
  - Gastrointestinal microorganism overgrowth [Unknown]
